FAERS Safety Report 5114116-8 (Version None)
Quarter: 2006Q3

REPORT INFORMATION
  Report Type: 
  Country: None (occurrence: None)
  Receive Date: 20060925
  Receipt Date: 20060919
  Transmission Date: 20061208
  Serious: Yes (Death)
  Sender: FDA-Public Use
  Company Number: GB-GLAXOSMITHKLINE-B0439255A

PATIENT
  Age: 21 Year
  Sex: Male

DRUGS (6)
  1. LITHIUM CARBONATE [Suspect]
     Route: 048
     Dates: start: 19970307, end: 20030321
  2. OLANZAPINE [Suspect]
     Dosage: 2.5MG PER DAY
     Dates: start: 20040501
  3. VALPROATE SODIUM [Suspect]
     Dosage: 20ML PER DAY
     Dates: start: 20020314
  4. DIPROBASE [Concomitant]
     Dates: start: 20020611
  5. LACTULOSE [Concomitant]
     Dosage: 20ML PER DAY
     Dates: start: 20020521
  6. OILATUM [Concomitant]
     Dates: start: 19970601

REACTIONS (2)
  - PNEUMONITIS [None]
  - RENAL FAILURE CHRONIC [None]
